FAERS Safety Report 24702291 (Version 1)
Quarter: 2024Q4

REPORT INFORMATION
  Report Type: Spontaneous
  Country: US (occurrence: US)
  Receive Date: 20241205
  Receipt Date: 20241205
  Transmission Date: 20250115
  Serious: No
  Sender: BLUEPRINT MEDICINES
  Company Number: US-Blueprint Medicines Corporation-5490

PATIENT
  Age: 45 Year
  Sex: Male

DRUGS (1)
  1. AYVAKIT [Suspect]
     Active Substance: AVAPRITINIB
     Indication: Mastocytoma
     Route: 065

REACTIONS (7)
  - Hair colour changes [Unknown]
  - Feeling cold [Unknown]
  - Cognitive disorder [Unknown]
  - Brain fog [Unknown]
  - Anaemia [Unknown]
  - Blood bilirubin abnormal [Unknown]
  - Off label use [Unknown]
